FAERS Safety Report 11983308 (Version 5)
Quarter: 2016Q2

REPORT INFORMATION
  Report Type: Spontaneous
  Country: IE (occurrence: IE)
  Receive Date: 20160201
  Receipt Date: 20160517
  Transmission Date: 20160815
  Serious: Yes (Other)
  Sender: FDA-Public Use
  Company Number: IE-BAYER-2016-018516

PATIENT
  Age: 41 Year
  Sex: Female
  Weight: 60.3 kg

DRUGS (2)
  1. MIRENA [Suspect]
     Active Substance: LEVONORGESTREL
     Indication: CONTRACEPTION
     Dosage: 20 MCG/24HR, CONT
     Route: 015
     Dates: start: 20110921, end: 20160208
  2. MIRENA [Suspect]
     Active Substance: LEVONORGESTREL
     Indication: CONTRACEPTION
     Dosage: 20 MCG/24HR, CONT
     Route: 015
     Dates: start: 20050926, end: 20110921

REACTIONS (3)
  - Breast mass [None]
  - Invasive ductal breast carcinoma [None]
  - Device use issue [Recovered/Resolved]

NARRATIVE: CASE EVENT DATE: 20100926
